FAERS Safety Report 23963321 (Version 1)
Quarter: 2024Q2

REPORT INFORMATION
  Report Type: Spontaneous
  Country: US (occurrence: None)
  Receive Date: 20240611
  Receipt Date: 20240611
  Transmission Date: 20240716
  Serious: Yes (Other)
  Sender: FDA-Public Use
  Company Number: None

PATIENT
  Sex: Female

DRUGS (8)
  1. SPRAVATO [Suspect]
     Active Substance: ESKETAMINE
     Indication: Major depression
     Dosage: FREQUENCY : WEEKLY;?
     Route: 045
     Dates: start: 20240116
  2. ABILIFY [Concomitant]
     Active Substance: ARIPIPRAZOLE
  3. CLARITIN [Concomitant]
     Active Substance: LORATADINE
  4. FAMOTIDINE [Concomitant]
     Active Substance: FAMOTIDINE
  5. IRON [Concomitant]
     Active Substance: IRON
  6. PEPCID AC [Concomitant]
     Active Substance: FAMOTIDINE
  7. PRISTIQ EXTENDED-RELEASE [Concomitant]
     Active Substance: DESVENLAFAXINE SUCCINATE
  8. SYNTHROID [Concomitant]
     Active Substance: LEVOTHYROXINE SODIUM

REACTIONS (1)
  - Suicidal ideation [None]
